FAERS Safety Report 18031439 (Version 1)
Quarter: 2020Q3

REPORT INFORMATION
  Report Type: Spontaneous
  Country: None (occurrence: CA)
  Receive Date: 20200716
  Receipt Date: 20200716
  Transmission Date: 20201103
  Serious: Yes (Other)
  Sender: FDA-Public Use
  Company Number: CA-ORION CORPORATION ORION PHARMA-20_00009892

PATIENT
  Age: 56 Year
  Sex: Male

DRUGS (3)
  1. METHOTREXATE (TRADE NAME UNKNOWN) [Suspect]
     Active Substance: METHOTREXATE
     Indication: CUTANEOUS T-CELL LYMPHOMA
     Route: 048
     Dates: start: 2016
  2. INTERFERON ALFA NOS [Suspect]
     Active Substance: INTERFERON ALFA-2A OR INTERFERON ALFA-2B
     Indication: CUTANEOUS T-CELL LYMPHOMA
     Dosage: 3 MILLION UNITS 3 TIMES WEEKLY
     Route: 058
     Dates: start: 201702, end: 201706
  3. ALITRETINOIN [Concomitant]
     Active Substance: ALITRETINOIN
     Indication: CUTANEOUS T-CELL LYMPHOMA
     Route: 048
     Dates: start: 201411

REACTIONS (2)
  - Adenocarcinoma pancreas [Recovering/Resolving]
  - Therapeutic response decreased [Unknown]

NARRATIVE: CASE EVENT DATE: 201707
